FAERS Safety Report 7364038-7 (Version None)
Quarter: 2011Q1

REPORT INFORMATION
  Report Type: 
  Country: None (occurrence: None)
  Receive Date: 20110321
  Receipt Date: 20110307
  Transmission Date: 20110831
  Serious: Yes (Other)
  Sender: FDA-Public Use
  Company Number: PHHY2011CA18822

PATIENT
  Sex: Female

DRUGS (2)
  1. FUROSEMIDE [Concomitant]
  2. DIOVAN [Suspect]
     Indication: CARDIAC DISORDER
     Dosage: 80 MG, UNK
     Route: 048

REACTIONS (4)
  - DYSPNOEA [None]
  - GAIT DISTURBANCE [None]
  - ABDOMINAL PAIN UPPER [None]
  - OEDEMA PERIPHERAL [None]
